FAERS Safety Report 17297205 (Version 1)
Quarter: 2020Q1

REPORT INFORMATION
  Report Type: Spontaneous
  Country: US (occurrence: US)
  Receive Date: 20200122
  Receipt Date: 20200122
  Transmission Date: 20200409
  Serious: Yes (Hospitalization)
  Sender: FDA-Public Use
  Company Number: US-ROCHE-2529229

PATIENT
  Age: 74 Year
  Sex: Female
  Weight: 5.44 kg

DRUGS (1)
  1. RITUXIMAB. [Suspect]
     Active Substance: RITUXIMAB
     Indication: PRODUCT USED FOR UNKNOWN INDICATION
     Route: 065

REACTIONS (5)
  - Gingival bleeding [Unknown]
  - Dizziness [Unknown]
  - Abdominal pain upper [Unknown]
  - Epistaxis [Unknown]
  - Alopecia [Unknown]

NARRATIVE: CASE EVENT DATE: 201910
